FAERS Safety Report 10133731 (Version 2)
Quarter: 2014Q2

REPORT INFORMATION
  Report Type: Report from Study
  Country: JP (occurrence: JP)
  Receive Date: 20140428
  Receipt Date: 20140428
  Transmission Date: 20141212
  Serious: Yes (Death, Other)
  Sender: FDA-Public Use
  Company Number: JP-SA-THYM-1004092

PATIENT
  Age: 67 Year
  Sex: Male
  Weight: 54 kg

DRUGS (13)
  1. THYMOGLOBULINE [Suspect]
     Indication: BONE MARROW CONDITIONING REGIMEN
     Dosage: 125 MG, ONCE
     Route: 065
     Dates: start: 20121113, end: 20121113
  2. FINIBAX [Concomitant]
     Indication: PROPHYLAXIS
     Dosage: UNK
     Route: 042
     Dates: start: 20121112, end: 20121123
  3. CHLORPHENAMINE MALEATE [Concomitant]
     Indication: PROPHYLAXIS
     Dosage: UNK
     Route: 065
     Dates: start: 20121101, end: 20121201
  4. CHLORPHENAMINE MALEATE [Concomitant]
     Indication: PROPHYLAXIS
     Dosage: UNK
     Route: 065
     Dates: start: 20130107, end: 20130209
  5. AMPHOTERICIN B [Concomitant]
     Indication: BRONCHOPULMONARY ASPERGILLOSIS
     Dosage: UNK
     Route: 042
     Dates: start: 20121103, end: 20121211
  6. INSULIN HUMAN [Concomitant]
     Indication: DIABETES MELLITUS
     Dosage: UNK
     Route: 065
     Dates: end: 20130210
  7. METHYLPREDNISOLONE SODIUM SUCCINATE [Concomitant]
     Indication: PROPHYLAXIS
     Dosage: UNK
     Route: 065
     Dates: start: 20121115, end: 20130123
  8. PREDNISOLONE [Concomitant]
     Indication: PROPHYLAXIS
     Dosage: WATER SOLUBLE
     Route: 065
     Dates: start: 20121126, end: 20121213
  9. PREDNISOLONE [Concomitant]
     Indication: PROPHYLAXIS
     Dosage: WATER SOLUBLE
     Route: 065
     Dates: start: 20130124, end: 20130207
  10. TACROLIMUS [Concomitant]
     Indication: PROPHYLAXIS
     Dosage: UNK
     Route: 065
     Dates: start: 20121113, end: 20130119
  11. ACICLOVIR [Concomitant]
     Indication: PROPHYLAXIS
     Dosage: UNK
     Route: 065
     Dates: start: 20121114, end: 20121217
  12. LEVOTHYROXINE SODIUM [Concomitant]
     Indication: THYROIDITIS CHRONIC
     Dosage: UNK
     Route: 065
     Dates: start: 20130119, end: 20130205
  13. CARBENIN [Concomitant]
     Indication: PROPHYLAXIS
     Dosage: UNK
     Route: 041
     Dates: start: 20130209, end: 20130210

REACTIONS (12)
  - Acute graft versus host disease in intestine [Unknown]
  - Acute graft versus host disease in liver [Unknown]
  - Acute myeloid leukaemia recurrent [Fatal]
  - Pulmonary mass [Not Recovered/Not Resolved]
  - Pleural effusion [Not Recovered/Not Resolved]
  - Delirium [Not Recovered/Not Resolved]
  - Fungal infection [Not Recovered/Not Resolved]
  - Staphylococcal sepsis [Not Recovered/Not Resolved]
  - Cytomegalovirus infection [Not Recovered/Not Resolved]
  - Pneumonia [Not Recovered/Not Resolved]
  - Urinary retention [Not Recovered/Not Resolved]
  - Haemorrhoids [Not Recovered/Not Resolved]
